FAERS Safety Report 7886797-7 (Version None)
Quarter: 2011Q4

REPORT INFORMATION
  Report Type: 
  Country: None (occurrence: None)
  Receive Date: 20111102
  Receipt Date: 20110711
  Transmission Date: 20120403
  Serious: No
  Sender: FDA-Public Use
  Company Number: US-AMGEN-USASP2011035040

PATIENT
  Age: 87 Year
  Sex: Female

DRUGS (17)
  1. LESCOL [Concomitant]
     Dosage: 20 MG, UNK
  2. MULTIVITAMIN                       /00097801/ [Concomitant]
     Dosage: UNK
  3. VICODIN [Concomitant]
     Dosage: UNK
  4. ENBREL [Suspect]
     Indication: PRODUCT USED FOR UNKNOWN INDICATION
     Dosage: 50 MG, QWK
     Route: 058
  5. LASIX [Concomitant]
     Dosage: 20 MG, UNK
  6. MACRODANTIN [Concomitant]
     Dosage: 25 MG, UNK
  7. VITAMIN B12                        /00056201/ [Concomitant]
  8. CLARINEX                           /01202601/ [Concomitant]
     Dosage: UNK
  9. OCUVITE                            /01053801/ [Concomitant]
     Dosage: UNK
  10. TYLENOL (CAPLET) [Suspect]
     Dosage: UNK
  11. FOSAMAX [Concomitant]
     Dosage: 5 MG, UNK
  12. PREDNISONE [Concomitant]
     Dosage: 1 MG, UNK
  13. FOLIC ACID [Concomitant]
     Dosage: 1 MG, UNK
  14. SPIRIVA [Concomitant]
     Dosage: UNK
  15. METHOTREXATE [Concomitant]
     Dosage: 2.5 MG, UNK
  16. SYNTHROID [Concomitant]
     Dosage: .025 MG, UNK
  17. VITAMIN D [Concomitant]

REACTIONS (2)
  - BRONCHITIS [None]
  - ASTHMA [None]
